FAERS Safety Report 6058065-X (Version None)
Quarter: 2009Q1

REPORT INFORMATION
  Report Type: 
  Country: None (occurrence: None)
  Receive Date: 20090127
  Receipt Date: 20090121
  Transmission Date: 20090719
  Serious: Yes (Other)
  Sender: FDA-Public Use
  Company Number: A0764506A

PATIENT
  Sex: Male

DRUGS (1)
  1. UREA PEROXIDE [Suspect]
     Indication: DRUG USE FOR UNKNOWN INDICATION
     Dosage: UNK/UNKNOWN/AURAL
     Route: 001

REACTIONS (1)
  - DEAFNESS [None]
